FAERS Safety Report 6109840-4 (Version None)
Quarter: 2009Q1

REPORT INFORMATION
  Report Type: 
  Country: None (occurrence: None)
  Receive Date: 20090310
  Receipt Date: 20080702
  Transmission Date: 20090719
  Serious: No
  Sender: FDA-Public Use
  Company Number: A0735680A

PATIENT
  Age: 50 Year
  Sex: Female

DRUGS (2)
  1. NICORETTE [Suspect]
     Dates: start: 20080628
  2. NICODERM CQ [Suspect]
     Dates: start: 20080628, end: 20080628

REACTIONS (4)
  - APPLICATION SITE IRRITATION [None]
  - APPLICATION SITE PRURITUS [None]
  - DRUG INEFFECTIVE [None]
  - NICOTINE DEPENDENCE [None]
